FAERS Safety Report 6818027-9 (Version None)
Quarter: 2010Q3

REPORT INFORMATION
  Report Type: 
  Country: None (occurrence: None)
  Receive Date: 20100706
  Receipt Date: 20100611
  Transmission Date: 20110219
  Serious: Yes (Hospitalization)
  Sender: FDA-Public Use
  Company Number: FR-PFIZER INC-2010070377

PATIENT
  Sex: Female

DRUGS (9)
  1. ATARAX [Suspect]
     Dosage: 50 MG, DAILY
     Route: 048
     Dates: end: 20100414
  2. XANAX [Interacting]
     Dosage: 0.5 MG, 3X/DAY
     Route: 048
     Dates: start: 20100409
  3. LEPTICUR [Interacting]
     Dosage: 60 MG, DAILY
     Route: 048
     Dates: end: 20100414
  4. LEPTICUR [Interacting]
     Dosage: 30 MG, UNK
     Route: 048
     Dates: start: 20100416
  5. CYMBALTA [Interacting]
     Indication: BIPOLAR I DISORDER
     Dosage: 60 MG, UNK
     Route: 048
     Dates: end: 20100414
  6. LOXAPAC [Interacting]
     Dosage: 50MG/2ML
     Route: 030
     Dates: start: 20100413, end: 20100413
  7. CLOPIXOL (DECANOATE) [Interacting]
     Indication: BIPOLAR I DISORDER
     Dosage: 300 MG, 1X/14 WEEKS
     Route: 030
  8. SULFARLEM [Concomitant]
  9. DEPAMIDE [Concomitant]
     Dosage: 300 MG, 2X/DAY

REACTIONS (4)
  - DRUG INTERACTION [None]
  - PYREXIA [None]
  - TACHYCARDIA [None]
  - TREMOR [None]
